FAERS Safety Report 4929401-X (Version None)
Quarter: 2006Q1

REPORT INFORMATION
  Report Type: 
  Country: None (occurrence: None)
  Receive Date: 20060301
  Receipt Date: 20060123
  Transmission Date: 20060701
  Serious: Yes (Hospitalization)
  Sender: FDA-Public Use
  Company Number: US-NOVOPROD-250869

PATIENT
  Age: 7 Month
  Sex: Male

DRUGS (3)
  1. NORDITROPIN CARTRIDGES [Suspect]
     Indication: GROWTH HORMONE DEFICIENCY
     Dosage: .2 MG, QD
     Dates: start: 20050901, end: 20051001
  2. NORDITROPIN CARTRIDGES [Suspect]
     Dosage: .3 MG, QD
     Dates: start: 20051001
  3. STEROIDS NOS [Concomitant]
     Indication: DRUG USE FOR UNKNOWN INDICATION
     Dosage: UNKNOWN

REACTIONS (3)
  - DEVICE MALFUNCTION [None]
  - HYPOGLYCAEMIC SEIZURE [None]
  - INCORRECT DOSE ADMINISTERED [None]
